FAERS Safety Report 5114458-6 (Version None)
Quarter: 2006Q3

REPORT INFORMATION
  Report Type: 
  Country: None (occurrence: None)
  Receive Date: 20060802
  Receipt Date: 20060425
  Transmission Date: 20061208
  Serious: No
  Sender: FDA-Public Use
  Company Number: 200611610US

PATIENT
  Age: 16 Year
  Sex: Female
  Weight: 65 kg

DRUGS (1)
  1. KETEK [Suspect]
     Indication: PHARYNGITIS
     Dates: start: 20060124, end: 20060125

REACTIONS (2)
  - HYPERTENSION [None]
  - VISION BLURRED [None]
